FAERS Safety Report 13551960 (Version 8)
Quarter: 2017Q3

REPORT INFORMATION
  Report Type: Report from Study
  Country: DE (occurrence: DE)
  Receive Date: 20170516
  Receipt Date: 20170901
  Transmission Date: 20171127
  Serious: Yes (Death, Hospitalization)
  Sender: FDA-Public Use
  Company Number: PHHY2017DE068926

PATIENT
  Age: 68 Year
  Sex: Male
  Weight: 82 kg

DRUGS (19)
  1. EXJADE [Suspect]
     Active Substance: DEFERASIROX
     Indication: MYELODYSPLASTIC SYNDROME
     Dosage: 500 MG (6.13 MG/KG BODY WEIGHT/DAY) DT, QD
     Route: 048
     Dates: start: 20160926, end: 20161220
  2. SIMVASTATIN. [Concomitant]
     Active Substance: SIMVASTATIN
     Indication: PRODUCT USED FOR UNKNOWN INDICATION
     Dosage: 20 MG, QD (0-0-1)
     Route: 065
     Dates: start: 20150714
  3. METAMIZOLE [Concomitant]
     Active Substance: METAMIZOLE
     Indication: PRODUCT USED FOR UNKNOWN INDICATION
     Dosage: 1 G, QID (1-1-1-1)
     Route: 065
     Dates: start: 20170425
  4. CLOPIDOGREL [Concomitant]
     Active Substance: CLOPIDOGREL BISULFATE
     Indication: HEART DISEASE CONGENITAL
     Dosage: 75 MG, QD (1-0-0)
     Route: 065
     Dates: start: 20150424, end: 20161211
  5. MOXIFLOXACIN. [Concomitant]
     Active Substance: MOXIFLOXACIN
     Indication: PRODUCT USED FOR UNKNOWN INDICATION
     Dosage: 400 OT, QD (1-0-0-0)
     Route: 065
     Dates: start: 20170425
  6. PREGABALIN. [Concomitant]
     Active Substance: PREGABALIN
     Indication: PRODUCT USED FOR UNKNOWN INDICATION
     Dosage: 75 OT, BID (1-0-2-0)
     Route: 065
     Dates: start: 20170425
  7. EXJADE [Suspect]
     Active Substance: DEFERASIROX
     Dosage: 14MG/KG BW/DAY ,720 MG/DAY 360 MG, FCT, BID
     Route: 048
     Dates: start: 20170330
  8. METOPROLOL. [Concomitant]
     Active Substance: METOPROLOL
     Indication: HEART DISEASE CONGENITAL
     Dosage: 47.5 MG, BID (1-0-1)
     Route: 065
     Dates: start: 20150424
  9. METOPROLOL. [Concomitant]
     Active Substance: METOPROLOL
     Indication: HYPERTENSION
  10. ASA [Concomitant]
     Active Substance: ASPIRIN
     Indication: HEART DISEASE CONGENITAL
     Dosage: 100 OT, QD (1-0-0)
     Route: 065
     Dates: start: 20150414
  11. PREDNISOLON [Concomitant]
     Active Substance: PREDNISOLONE
     Indication: PRODUCT USED FOR UNKNOWN INDICATION
     Dosage: 0.5 DF, QD (0.5-0-0)
     Route: 065
     Dates: start: 20170425
  12. MACROGOL [Concomitant]
     Active Substance: POLYETHYLENE GLYCOLS
     Indication: PRODUCT USED FOR UNKNOWN INDICATION
     Dosage: 1 DF, UNK (1 POUCH)
     Route: 065
     Dates: start: 20170425
  13. CHOLECALCIFEROL [Concomitant]
     Active Substance: CHOLECALCIFEROL
     Indication: PRODUCT USED FOR UNKNOWN INDICATION
     Dosage: 1 DF, QD  (1-0-0)
     Route: 065
     Dates: start: 20151103
  14. POTASSIUM [Concomitant]
     Active Substance: POTASSIUM
     Indication: PRODUCT USED FOR UNKNOWN INDICATION
     Dosage: 2 DF, TID (2-2-2-0)
     Route: 065
     Dates: start: 20170425
  15. EXJADE [Suspect]
     Active Substance: DEFERASIROX
     Dosage: 500 MG BID (14MG/KG BW/DAY) DT
     Route: 048
     Dates: start: 20161221, end: 20170329
  16. TIOTROPIUM BROMIDE [Concomitant]
     Active Substance: TIOTROPIUM BROMIDE
     Indication: CHRONIC OBSTRUCTIVE PULMONARY DISEASE
     Dosage: 18 UG, QD
     Route: 065
     Dates: start: 20150714
  17. HYDROMORPHONE [Concomitant]
     Active Substance: HYDROMORPHONE
     Indication: PRODUCT USED FOR UNKNOWN INDICATION
     Dosage: 12 MG, QD (1-0-0-0)
     Route: 065
     Dates: start: 20170425
  18. PANTOPRAZOLE [Concomitant]
     Active Substance: PANTOPRAZOLE
     Indication: HYPERTENSION
     Dosage: 40 MG, BID (1-0-1)
     Route: 065
     Dates: start: 20150424
  19. RAMIPRIL. [Concomitant]
     Active Substance: RAMIPRIL
     Indication: HYPERTENSION
     Dosage: 2.5 OT, QD (1-0-0)
     Route: 065
     Dates: start: 20150524

REACTIONS (8)
  - Atypical pneumonia [Recovering/Resolving]
  - Abdominal pain lower [Recovering/Resolving]
  - Sarcoidosis [Recovering/Resolving]
  - General physical health deterioration [Recovered/Resolved]
  - Abnormal faeces [Recovering/Resolving]
  - Death [Fatal]
  - Pneumonia fungal [Recovering/Resolving]
  - Anaemia [Recovered/Resolved]

NARRATIVE: CASE EVENT DATE: 20161130
